FAERS Safety Report 9473397 (Version 1)
Quarter: 2013Q3

REPORT INFORMATION
  Report Type: Spontaneous
  Country: US (occurrence: None)
  Receive Date: 20130820
  Receipt Date: 20130820
  Transmission Date: 20140515
  Serious: Yes (Other)
  Sender: FDA-Public Use
  Company Number: 2013-3358

PATIENT
  Age: 34 Year
  Sex: Male

DRUGS (3)
  1. SOMATULINE DEPOT INJECTION (120MG) [Suspect]
     Indication: ACROMEGALY
     Dosage: (120 MG, 1 IN 28 D)
     Route: 058
     Dates: start: 20130111
  2. TOPAMAX [Concomitant]
  3. IMITREX [Concomitant]

REACTIONS (3)
  - Neoplasm [None]
  - Headache [None]
  - Insulin-like growth factor increased [None]
